FAERS Safety Report 21599001 (Version 3)
Quarter: 2023Q1

REPORT INFORMATION
  Report Type: Report from Study
  Country: US (occurrence: US)
  Receive Date: 20221115
  Receipt Date: 20230217
  Transmission Date: 20230418
  Serious: Yes (Other)
  Sender: FDA-Public Use
  Company Number: US-BRISTOL-MYERS SQUIBB COMPANY-2022-134707

PATIENT
  Age: 60 Year
  Sex: Male

DRUGS (2)
  1. CAMZYOS [Suspect]
     Active Substance: MAVACAMTEN
     Indication: Hypertrophic cardiomyopathy
     Dosage: DOSE: 1 CAP PO QD
     Route: 048
     Dates: start: 20221012
  2. CAMZYOS [Suspect]
     Active Substance: MAVACAMTEN

REACTIONS (1)
  - Ear disorder [Unknown]
